FAERS Safety Report 18669977 (Version 3)
Quarter: 2022Q4

REPORT INFORMATION
  Report Type: Spontaneous
  Country: JP (occurrence: JP)
  Receive Date: 20201228
  Receipt Date: 20221221
  Transmission Date: 20230113
  Serious: Yes (Hospitalization)
  Sender: FDA-Public Use
  Company Number: JP-ELI_LILLY_AND_COMPANY-JP202012012468

PATIENT
  Age: 61 Year
  Sex: Male

DRUGS (3)
  1. NECITUMUMAB [Suspect]
     Active Substance: NECITUMUMAB
     Indication: Lung squamous cell carcinoma recurrent
     Dosage: 800 MG, DAILY
     Route: 041
     Dates: start: 20201105, end: 20201126
  2. GEMCITABINE [Concomitant]
     Active Substance: GEMCITABINE
     Indication: Lung squamous cell carcinoma recurrent
     Route: 041
  3. CISPLATIN [Concomitant]
     Active Substance: CISPLATIN
     Indication: Lung squamous cell carcinoma recurrent

REACTIONS (2)
  - COVID-19 [Recovered/Resolved]
  - Skin disorder [Recovered/Resolved]

NARRATIVE: CASE EVENT DATE: 20201112
